FAERS Safety Report 7482601-X (Version None)
Quarter: 2011Q2

REPORT INFORMATION
  Report Type: 
  Country: None (occurrence: None)
  Receive Date: 20110516
  Receipt Date: 20110427
  Transmission Date: 20111010
  Serious: No
  Sender: FDA-Public Use
  Company Number: US-B.I. PHARMACEUTICALS,INC./RIDGEFIELD-2011-BP-10012BP

PATIENT
  Sex: Male

DRUGS (8)
  1. OMEPRAZOLE [Concomitant]
  2. SPIRIVA [Suspect]
  3. SIMVASTATIN [Concomitant]
  4. SPIRIVA [Suspect]
     Indication: LUNG DISORDER
     Dosage: 18 MCG
     Route: 055
     Dates: start: 20110201, end: 20110310
  5. ZOCOR [Concomitant]
     Indication: BLOOD CHOLESTEROL INCREASED
     Route: 048
  6. QVAR 40 [Concomitant]
     Indication: LUNG DISORDER
     Route: 055
  7. TENORMIN [Concomitant]
     Indication: HYPERTENSION
     Route: 048
     Dates: end: 20110301
  8. MIDORINE [Concomitant]

REACTIONS (5)
  - DIZZINESS [None]
  - TONGUE DISORDER [None]
  - DRY MOUTH [None]
  - SWOLLEN TONGUE [None]
  - MUSCULAR WEAKNESS [None]
